FAERS Safety Report 22258307 (Version 1)
Quarter: 2023Q2

REPORT INFORMATION
  Report Type: Report from Study
  Country: GB (occurrence: GB)
  Receive Date: 20230427
  Receipt Date: 20230427
  Transmission Date: 20230721
  Serious: Yes (Other)
  Sender: FDA-Public Use
  Company Number: GB-UCBSA-2023008485

PATIENT
  Sex: Female

DRUGS (1)
  1. CERTOLIZUMAB PEGOL [Suspect]
     Active Substance: CERTOLIZUMAB PEGOL
     Indication: Rheumatoid arthritis
     Dosage: 200 MILLIGRAM, EOW
     Route: 058
     Dates: start: 20221230

REACTIONS (5)
  - Pleural effusion [Not Recovered/Not Resolved]
  - Pulmonary cavitation [Not Recovered/Not Resolved]
  - Infection [Unknown]
  - Therapy interrupted [Unknown]
  - Product dose omission issue [Unknown]
